FAERS Safety Report 5321783-2 (Version None)
Quarter: 2007Q2

REPORT INFORMATION
  Report Type: 
  Country: None (occurrence: None)
  Receive Date: 20070510
  Receipt Date: 20070501
  Transmission Date: 20071010
  Serious: Yes (Other)
  Sender: FDA-Public Use
  Company Number: AU-PFIZER INC-2007035602

PATIENT
  Age: 83 Year
  Sex: Male

DRUGS (3)
  1. SUTENT [Suspect]
     Indication: RENAL CELL CARCINOMA STAGE UNSPECIFIED
  2. OXYCONTIN [Suspect]
  3. METFORMIN HCL [Concomitant]

REACTIONS (3)
  - ABDOMINAL PAIN [None]
  - BILE DUCT OBSTRUCTION [None]
  - MALAISE [None]
